FAERS Safety Report 21069891 (Version 1)
Quarter: 2022Q3

REPORT INFORMATION
  Report Type: Spontaneous
  Country: US (occurrence: US)
  Receive Date: 20220712
  Receipt Date: 20220712
  Transmission Date: 20221027
  Serious: No
  Sender: FDA-Public Use
  Company Number: US-ASTELLAS-2021US031270

PATIENT
  Sex: Female

DRUGS (1)
  1. MYRBETRIQ [Suspect]
     Active Substance: MIRABEGRON
     Indication: Urinary incontinence
     Route: 048

REACTIONS (3)
  - Hyperhidrosis [Recovered/Resolved]
  - Tachycardia [Recovered/Resolved]
  - Dizziness [Recovered/Resolved]
